FAERS Safety Report 13743668 (Version 1)
Quarter: 2017Q3

REPORT INFORMATION
  Report Type: Spontaneous
  Country: BR (occurrence: BR)
  Receive Date: 20170711
  Receipt Date: 20170711
  Transmission Date: 20171127
  Serious: Yes (Hospitalization)
  Sender: FDA-Public Use
  Company Number: BR-ARALEZ PHARMACEUTICALS R+D INC.-ARA-TP-BR-2017-677

PATIENT
  Sex: Male

DRUGS (4)
  1. SELOZOK FIX [Suspect]
     Active Substance: FELODIPINE\METOPROLOL SUCCINATE
     Indication: ARRHYTHMIA
     Dosage: 50/5 MG, DAILY
     Route: 048
     Dates: start: 201703, end: 201706
  2. MONOCORDIL [Concomitant]
     Active Substance: ISOSORBIDE MONONITRATE
     Indication: PRODUCT USED FOR UNKNOWN INDICATION
     Dates: start: 201703
  3. METOPROLOL SUCCINATE. [Suspect]
     Active Substance: METOPROLOL SUCCINATE
     Indication: ARRHYTHMIA
     Dosage: DAILY
     Route: 048
     Dates: end: 201703
  4. BRILINTA [Suspect]
     Active Substance: TICAGRELOR
     Indication: CARDIAC DISORDER
     Route: 048
     Dates: start: 2016, end: 2016

REACTIONS (3)
  - Coronary artery occlusion [Recovered/Resolved]
  - Malaise [Recovered/Resolved]
  - Insomnia [Recovered/Resolved]

NARRATIVE: CASE EVENT DATE: 2016
